FAERS Safety Report 21032913 (Version 1)
Quarter: 2022Q3

REPORT INFORMATION
  Report Type: Spontaneous
  Country: DE (occurrence: DE)
  Receive Date: 20220701
  Receipt Date: 20220701
  Transmission Date: 20221027
  Serious: Yes (Other)
  Sender: FDA-Public Use
  Company Number: DE-BFARM-22002733

PATIENT
  Age: 71 Year
  Sex: Female

DRUGS (7)
  1. VALSARTAN [Interacting]
     Active Substance: VALSARTAN
     Indication: Product used for unknown indication
     Dosage: TAKE 160MG IN THE MORNING AND IN THE EVENING
     Route: 065
  2. AMLODIPINE BESYLATE [Interacting]
     Active Substance: AMLODIPINE BESYLATE
     Indication: Product used for unknown indication
     Dosage: TAKE 5MG IN THE MORNING AND IN THE EVENING
     Route: 065
  3. HYPERICUM PERFORATUM WHOLE [Interacting]
     Active Substance: HYPERICUM PERFORATUM WHOLE
     Indication: Generalised anxiety disorder
     Dosage: UNK
     Route: 065
     Dates: start: 20211101, end: 20220411
  4. HYPERICUM PERFORATUM WHOLE [Interacting]
     Active Substance: HYPERICUM PERFORATUM WHOLE
     Indication: Depression
  5. HYDROCHLOROTHIAZIDE [Interacting]
     Active Substance: HYDROCHLOROTHIAZIDE
     Indication: Product used for unknown indication
     Dosage: 12.5 MILLIGRAM, DAILY INGESTION EARLY
     Route: 065
  6. BUDESONIDE [Concomitant]
     Active Substance: BUDESONIDE
     Indication: Asthma
     Dosage: 1 STROKE IN THE MORNING AND IN THE EVENING
     Route: 055
  7. LEVOTHYROXINE SODIUM [Concomitant]
     Active Substance: LEVOTHYROXINE SODIUM
     Indication: Product used for unknown indication
     Dosage: UNK
     Route: 065

REACTIONS (6)
  - Blood pressure increased [Recovered/Resolved]
  - Arrhythmia [Recovering/Resolving]
  - Muscle spasms [Recovering/Resolving]
  - Panic disorder [Unknown]
  - Anxiety [Unknown]
  - Drug interaction [Unknown]

NARRATIVE: CASE EVENT DATE: 20210101
